FAERS Safety Report 5650382-8 (Version None)
Quarter: 2008Q1

REPORT INFORMATION
  Report Type: 
  Country: None (occurrence: None)
  Receive Date: 20080305
  Receipt Date: 20080229
  Transmission Date: 20080703
  Serious: Yes (Life-Threatening, Hospitalization)
  Sender: FDA-Public Use
  Company Number: JP-BRISTOL-MYERS SQUIBB COMPANY-14085237

PATIENT
  Age: 74 Year
  Sex: Female

DRUGS (12)
  1. TAXOL [Suspect]
     Indication: UTERINE CANCER
     Dosage: THERAPY START - 26DEC2007
     Route: 041
     Dates: start: 20080206, end: 20080206
  2. PARAPLATIN [Suspect]
     Indication: UTERINE CANCER
     Dosage: THERAPY START -26DEC2007
     Route: 041
     Dates: start: 20080206, end: 20080206
  3. WARFARIN SODIUM [Suspect]
  4. NASEA [Concomitant]
     Route: 041
     Dates: start: 20080206, end: 20080206
  5. FAMOTIDINE [Concomitant]
     Route: 041
     Dates: start: 20080206, end: 20080206
  6. DECADRON [Concomitant]
     Route: 041
     Dates: start: 20080206, end: 20080206
  7. RESTAMIN [Concomitant]
     Route: 048
     Dates: start: 20080206, end: 20080206
  8. SHAKUYAKU-KANZO-TO [Concomitant]
     Route: 048
     Dates: start: 20080117, end: 20080207
  9. GOSHAJINKIGAN [Concomitant]
     Route: 048
     Dates: start: 20080117, end: 20080207
  10. LASIX [Concomitant]
     Route: 048
     Dates: start: 20071227, end: 20080207
  11. ASPARA-K [Concomitant]
     Route: 048
     Dates: start: 20071227, end: 20080207
  12. HEPARIN SODIUM [Concomitant]

REACTIONS (2)
  - DEEP VEIN THROMBOSIS [None]
  - PULMONARY EMBOLISM [None]
